FAERS Safety Report 8601460-2 (Version None)
Quarter: 2012Q3

REPORT INFORMATION
  Report Type: 
  Country: None (occurrence: None)
  Receive Date: 20120817
  Receipt Date: 20110817
  Transmission Date: 20120928
  Serious: Yes (Hospitalization)
  Sender: FDA-Public Use
  Company Number: US-BRISTOL-MYERS SQUIBB COMPANY-15979040

PATIENT
  Sex: Male

DRUGS (1)
  1. SPRYCEL [Suspect]
     Dosage: DURATION OF THERAPY:APPROX 2 YEARS

REACTIONS (1)
  - PLEURAL EFFUSION [None]
